FAERS Safety Report 24791200 (Version 1)
Quarter: 2024Q4

REPORT INFORMATION
  Report Type: Spontaneous
  Country: US (occurrence: US)
  Receive Date: 20241230
  Receipt Date: 20241230
  Transmission Date: 20250115
  Serious: No
  Sender: AMNEAL
  Company Number: US-AMNEAL PHARMACEUTICALS-2024-AMRX-04278

PATIENT
  Sex: Female
  Weight: 135.1 kg

DRUGS (1)
  1. MEDROXYPROGESTERONE ACETATE [Suspect]
     Active Substance: MEDROXYPROGESTERONE ACETATE
     Indication: Contraception
     Dosage: 150 MG/ML
     Route: 030
     Dates: start: 20241018

REACTIONS (4)
  - Application site burn [Unknown]
  - Device difficult to use [Unknown]
  - Device deployment issue [Unknown]
  - Needle issue [Unknown]
